FAERS Safety Report 5699156-2 (Version None)
Quarter: 2008Q2

REPORT INFORMATION
  Report Type: 
  Country: None (occurrence: None)
  Receive Date: 20080407
  Receipt Date: 20080407
  Transmission Date: 20081010
  Serious: Yes (Other)
  Sender: FDA-Public Use
  Company Number: None

PATIENT
  Age: 44 Year
  Sex: Female
  Weight: 79.3795 kg

DRUGS (1)
  1. AZITHROMYCIN [Suspect]
     Indication: BRONCHITIS
     Dosage: 1 A DAY 10 DAYS PO 8 DAYS, THEN DC'ED
     Route: 048
     Dates: start: 20080331, end: 20080405

REACTIONS (5)
  - ABDOMINAL DISTENSION [None]
  - BLISTER [None]
  - OEDEMA PERIPHERAL [None]
  - RASH [None]
  - SCAB [None]
